FAERS Safety Report 8612446-6 (Version None)
Quarter: 2012Q3

REPORT INFORMATION
  Report Type: 
  Country: None (occurrence: None)
  Receive Date: 20120822
  Receipt Date: 20120815
  Transmission Date: 20120928
  Serious: Yes (Other)
  Sender: FDA-Public Use
  Company Number: US-US-EMD SERONO, INC.-7047945

PATIENT
  Sex: Female
  Weight: 66 kg

DRUGS (4)
  1. BIEST [Concomitant]
     Indication: HORMONE REPLACEMENT THERAPY
  2. LEVOTHYROXINE SODIUM [Concomitant]
     Indication: HYPOTHYROIDISM
  3. REBIF [Suspect]
     Indication: MULTIPLE SCLEROSIS
     Route: 058
     Dates: start: 20060817
  4. UNSPECIFIED MIGRAINE MEDICATION [Concomitant]
     Indication: MIGRAINE

REACTIONS (3)
  - OSTEOARTHRITIS [None]
  - GINGIVITIS [None]
  - RASH [None]
